FAERS Safety Report 18834208 (Version 8)
Quarter: 2023Q2

REPORT INFORMATION
  Report Type: Report from Study
  Country: IT (occurrence: None)
  Receive Date: 20210203
  Receipt Date: 20230421
  Transmission Date: 20230722
  Serious: Yes (Hospitalization)
  Sender: FDA-Public Use
  Company Number: IT-ROCHE-2760294

PATIENT
  Age: 52 Year
  Sex: Female
  Weight: 68 kg

DRUGS (7)
  1. OCRELIZUMAB [Suspect]
     Active Substance: OCRELIZUMAB
     Indication: Progressive multiple sclerosis
     Dosage: 600 MG EVERY 24 WEEK LAST DOSE ADMINISTERED ON 10/JUL/2020?INITIAL DOSE OF TWO 300 MG INFUSIONS SEPA
     Route: 042
     Dates: start: 20190116
  2. TIOBEC TABLET [Concomitant]
     Route: 048
     Dates: start: 2018
  3. METHYLPREDNISOLONE [Concomitant]
     Active Substance: METHYLPREDNISOLONE
     Indication: Premedication
     Dosage: NEXT DOSE ON 30/JAN/2019, 17/JUL/2019, 15/JAN/2020, 10/JUL/2020
     Route: 042
     Dates: start: 20190116
  4. TRIMETON [Concomitant]
     Active Substance: CHLORPHENIRAMINE MALEATE
     Route: 030
     Dates: start: 20190116
  5. CHLORPHENIRAMINE MALEATE [Concomitant]
     Active Substance: CHLORPHENIRAMINE MALEATE
     Dosage: NEXT DOSE ON 17/JUL/2019, 15/JAN/2020, 10/JUL/2020
     Route: 030
     Dates: start: 20190130
  6. PANTOPRAZOLE SODIUM [Concomitant]
     Active Substance: PANTOPRAZOLE SODIUM
     Route: 048
     Dates: start: 20201112, end: 20201231
  7. PANTOPRAZOLE SODIUM [Concomitant]
     Active Substance: PANTOPRAZOLE SODIUM
     Route: 048
     Dates: start: 20210101

REACTIONS (1)
  - COVID-19 [Recovered/Resolved with Sequelae]

NARRATIVE: CASE EVENT DATE: 20201027
